FAERS Safety Report 10245994 (Version 2)
Quarter: 2014Q2

REPORT INFORMATION
  Report Type: Report from Study
  Country: CA (occurrence: CA)
  Receive Date: 20140619
  Receipt Date: 20140619
  Transmission Date: 20141212
  Serious: Yes (Other)
  Sender: FDA-Public Use
  Company Number: PHHY2013CA139551

PATIENT
  Sex: Male

DRUGS (2)
  1. CLOZARIL [Suspect]
     Dosage: UKN
     Dates: start: 20130620, end: 20131004
  2. CLOZARIL [Suspect]
     Dosage: UKN
     Route: 048
     Dates: start: 20140224, end: 20140609

REACTIONS (2)
  - Gastrointestinal disorder [Unknown]
  - Constipation [Unknown]
